FAERS Safety Report 7485289-7 (Version None)
Quarter: 2011Q2

REPORT INFORMATION
  Report Type: 
  Country: None (occurrence: None)
  Receive Date: 20110517
  Receipt Date: 20101216
  Transmission Date: 20111010
  Serious: Yes (Other)
  Sender: FDA-Public Use
  Company Number: US-BAYER-2010-005804

PATIENT
  Sex: Female

DRUGS (2)
  1. ALCOHOL [Interacting]
     Dosage: 3 DF, UNK
  2. ALEVE (CAPLET) [Suspect]
     Dosage: 220 MG, UNK
     Route: 048

REACTIONS (4)
  - DIZZINESS [None]
  - SYNCOPE [None]
  - NAUSEA [None]
  - RETCHING [None]
